FAERS Safety Report 5784228-4 (Version None)
Quarter: 2008Q2

REPORT INFORMATION
  Report Type: 
  Country: None (occurrence: None)
  Receive Date: 20080619
  Receipt Date: 20080516
  Transmission Date: 20081010
  Serious: Yes (Hospitalization, Other)
  Sender: FDA-Public Use
  Company Number: IDA-00083

PATIENT
  Age: 70 Year
  Sex: Male

DRUGS (11)
  1. MYSOLINE [Suspect]
     Indication: ESSENTIAL TREMOR
     Dosage: 100 MG BID PO, FORMULATION
     Route: 048
  2. PROPRANOLOL [Suspect]
     Indication: TREMOR
     Dosage: 40 MG BID PO, FORMULATION:
     Route: 048
  3. ASPIRIN [Suspect]
     Indication: CORONARY ARTERY BYPASS
     Dosage: TOTAL DAILY DOSE: 81 MG/ TOTAL DAILY DOSE: 81 MG
  4. PLENDIL [Concomitant]
  5. TOPROL-XL [Concomitant]
  6. FERROUS SULFATE TAB [Concomitant]
  7. MONOPRIL (FOSONOPRIL SODIUM) [Concomitant]
  8. VASERETIC [Concomitant]
  9. ZOCOR [Concomitant]
  10. MELATONIN [Concomitant]
  11. PRILOSEC [Concomitant]

REACTIONS (16)
  - BLOOD HOMOCYSTEINE INCREASED [None]
  - BLOOD PRESSURE INCREASED [None]
  - BLOOD TRIGLYCERIDES INCREASED [None]
  - DISORIENTATION [None]
  - DIZZINESS [None]
  - DRUG INTOLERANCE [None]
  - DYSARTHRIA [None]
  - FACIAL PALSY [None]
  - HAEMORRHAGE INTRACRANIAL [None]
  - HEMIPARESIS [None]
  - LOW DENSITY LIPOPROTEIN DECREASED [None]
  - MUSCULAR WEAKNESS [None]
  - PARAESTHESIA [None]
  - PROCEDURAL COMPLICATION [None]
  - SOMNOLENCE [None]
  - VASCULAR INJURY [None]
